FAERS Safety Report 17909650 (Version 2)
Quarter: 2020Q2

REPORT INFORMATION
  Report Type: Spontaneous
  Country: US (occurrence: US)
  Receive Date: 20200617
  Receipt Date: 20200624
  Transmission Date: 20200714
  Serious: No
  Sender: FDA-Public Use
  Company Number: US-STRONGBRIDGE BIOPHARMA-2020-STR-000146

PATIENT
  Sex: Female

DRUGS (1)
  1. KEVEYIS [Suspect]
     Active Substance: DICHLORPHENAMIDE
     Indication: FAMILIAL PERIODIC PARALYSIS
     Dosage: 75 MG, BID
     Route: 048

REACTIONS (6)
  - Feeling abnormal [Unknown]
  - Migraine [Unknown]
  - Nausea [Unknown]
  - Disease recurrence [Recovering/Resolving]
  - Wrong technique in product usage process [Recovering/Resolving]
  - Cyclic vomiting syndrome [Recovering/Resolving]
